FAERS Safety Report 19261937 (Version 2)
Quarter: 2021Q3

REPORT INFORMATION
  Report Type: Spontaneous
  Country: DE (occurrence: DE)
  Receive Date: 20210516
  Receipt Date: 20210705
  Transmission Date: 20211014
  Serious: Yes (Hospitalization, Other)
  Sender: FDA-Public Use
  Company Number: DE-AUROBINDO-AUR-APL-2021-019698

PATIENT
  Sex: Female
  Weight: 55 kg

DRUGS (17)
  1. FENTANYL TRANSDERMAL SYSTEM [Suspect]
     Active Substance: FENTANYL
     Indication: BACK PAIN
     Dosage: UNK
     Route: 065
     Dates: start: 20160606, end: 201606
  2. LUCENTIS [Suspect]
     Active Substance: RANIBIZUMAB
     Dosage: 0.5 MILLIGRAM(0.5 MG (PER APPLICATION)
     Route: 031
     Dates: start: 20170710
  3. LUCENTIS [Suspect]
     Active Substance: RANIBIZUMAB
     Dosage: 0.5 MILLIGRAM(0.5 MG (PER APPLICATION)
     Route: 031
     Dates: start: 20170904
  4. LUCENTIS [Suspect]
     Active Substance: RANIBIZUMAB
     Dosage: 0.5 MILLIGRAM(0.5 MG (PER APPLICATION)
     Route: 031
     Dates: start: 20161010
  5. LUCENTIS [Suspect]
     Active Substance: RANIBIZUMAB
     Dosage: 0.5 MILLIGRAM(0.5 MG (1X PER APPLICATION)
     Route: 031
     Dates: start: 20160407
  6. LUCENTIS [Suspect]
     Active Substance: RANIBIZUMAB
     Dosage: 0.5 MILLIGRAM(0.5 MG (1X PER APPLICATION)
     Route: 031
     Dates: start: 20160714
  7. HYDROCHLOROTHIAZIDE. [Suspect]
     Active Substance: HYDROCHLOROTHIAZIDE
     Indication: HYPERTENSION
     Dosage: 25 MILLIGRAM, ONCE A DAY
     Route: 048
  8. HYDROCHLOROTHIAZIDE. [Suspect]
     Active Substance: HYDROCHLOROTHIAZIDE
     Dosage: UNK
     Route: 065
  9. LUCENTIS [Suspect]
     Active Substance: RANIBIZUMAB
     Indication: NEOVASCULAR AGE-RELATED MACULAR DEGENERATION
     Dosage: 0.5 MILLIGRAM(0.5 MG (PER APPLICATION)
     Route: 031
     Dates: start: 201502
  10. LUCENTIS [Suspect]
     Active Substance: RANIBIZUMAB
     Dosage: 0.5 MILLIGRAM(0.5 MG (PER APPLICATION)
     Route: 031
     Dates: start: 20171024
  11. LUCENTIS [Suspect]
     Active Substance: RANIBIZUMAB
     Dosage: 0.5 MILLIGRAM(0.5 MG (PER APPLICATION)
     Route: 031
     Dates: start: 20180215
  12. LUCENTIS [Suspect]
     Active Substance: RANIBIZUMAB
     Dosage: 0.5 MILLIGRAM(0.5 MG (6 TIMES)
     Route: 031
     Dates: start: 20150224
  13. LUCENTIS [Suspect]
     Active Substance: RANIBIZUMAB
     Dosage: 0.5 MILLIGRAM(0.5 MG (1X PER APPLICATION)
     Route: 031
     Dates: start: 20160512
  14. LUCENTIS [Suspect]
     Active Substance: RANIBIZUMAB
     Dosage: 0.5 MILLIGRAM(0.5 MG (1X PER APPLICATION)
     Route: 031
     Dates: start: 20160815
  15. LUCENTIS [Suspect]
     Active Substance: RANIBIZUMAB
     Dosage: 0.5 MILLIGRAM(0.5 MG (PER APPLICATION)
     Route: 031
     Dates: start: 20171219
  16. LUCENTIS [Suspect]
     Active Substance: RANIBIZUMAB
     Dosage: 0.5 MILLIGRAM(0.5 MG (PER APPLICATION)
     Route: 031
     Dates: start: 20161219
  17. LUCENTIS [Suspect]
     Active Substance: RANIBIZUMAB
     Dosage: 0.5 MILLIGRAM(0.5 MG (PER APPLICATION)
     Route: 031
     Dates: start: 20170807

REACTIONS (4)
  - Hyponatraemia [Recovered/Resolved]
  - Upper limb fracture [Unknown]
  - Pelvic fracture [Recovered/Resolved with Sequelae]
  - Urinary tract infection [Recovered/Resolved]

NARRATIVE: CASE EVENT DATE: 20160607
